FAERS Safety Report 4447301-9 (Version None)
Quarter: 2004Q3

REPORT INFORMATION
  Report Type: 
  Country: None (occurrence: None)
  Receive Date: 20040813
  Receipt Date: 20040715
  Transmission Date: 20050211
  Serious: No
  Sender: FDA-Public Use
  Company Number: S04-USA-04118-01

PATIENT
  Sex: Female

DRUGS (11)
  1. NAMENDA [Suspect]
     Indication: DEMENTIA ALZHEIMER'S TYPE
     Dosage: 10 MG QD PO
     Route: 048
     Dates: start: 20040101, end: 20040101
  2. NAMENDA [Suspect]
     Indication: DEMENTIA ALZHEIMER'S TYPE
     Dosage: 15 MG QD PO
     Route: 048
     Dates: start: 20040101
  3. ARICEPT [Concomitant]
  4. SEROQUEL (QUETIAPINE FUMURATE) [Concomitant]
  5. LITHIUM [Concomitant]
  6. LEXAPRO [Concomitant]
  7. HUMALOG [Concomitant]
  8. LANTUS [Concomitant]
  9. LORAZEPAM [Concomitant]
  10. ASPIRIN [Concomitant]
  11. NAMENDA [Suspect]
     Indication: DEMENTIA ALZHEIMER'S TYPE
     Dosage: 5 MG QD PO
     Route: 048
     Dates: start: 20040401

REACTIONS (1)
  - FEELING HOT [None]
